FAERS Safety Report 6444435-4 (Version None)
Quarter: 2009Q4

REPORT INFORMATION
  Report Type: 
  Country: None (occurrence: None)
  Receive Date: 20091118
  Receipt Date: 20091109
  Transmission Date: 20100525
  Serious: Yes (Hospitalization, Other)
  Sender: FDA-Public Use
  Company Number: US-AMGEN-STX373528

PATIENT
  Sex: Male

DRUGS (13)
  1. SENSIPAR [Suspect]
     Indication: HYPERPARATHYROIDISM SECONDARY
  2. TACROLIMUS [Concomitant]
  3. MYCOPHENOLATE MOFETIL [Concomitant]
  4. VITAMIN D [Concomitant]
  5. PREDNISONE [Concomitant]
  6. UNSPECIFIED MEDICATION [Concomitant]
  7. MICONAZOLE NITRATE [Concomitant]
  8. INSULIN [Concomitant]
  9. ALBUTEROL [Concomitant]
  10. LOPRESSOR [Concomitant]
  11. FAMOTIDINE [Concomitant]
  12. CALCITRIOL [Concomitant]
  13. AMLODIPINE [Concomitant]

REACTIONS (4)
  - DRUG INEFFECTIVE [None]
  - INCORRECT DRUG DOSAGE FORM ADMINISTERED [None]
  - RENAL FAILURE CHRONIC [None]
  - RESPIRATORY FAILURE [None]
